FAERS Safety Report 6335364-5 (Version None)
Quarter: 2009Q3

REPORT INFORMATION
  Report Type: 
  Country: None (occurrence: None)
  Receive Date: 20090831
  Receipt Date: 20090818
  Transmission Date: 20100115
  Serious: Yes (Death)
  Sender: FDA-Public Use
  Company Number: US-ELI_LILLY_AND_COMPANY-US200904005011

PATIENT
  Age: 7 Year
  Sex: Male
  Weight: 30.385 kg

DRUGS (2)
  1. SYMBYAX [Suspect]
     Indication: IMPULSE-CONTROL DISORDER
     Dosage: 1 D/F, UNK
     Dates: start: 20090318
  2. LEXAPRO [Concomitant]
     Indication: DEPRESSION
     Dates: end: 20090101

REACTIONS (3)
  - ANGER [None]
  - COMPLETED SUICIDE [None]
  - SELF INJURIOUS BEHAVIOUR [None]
